FAERS Safety Report 17497257 (Version 2)
Quarter: 2020Q2

REPORT INFORMATION
  Report Type: Spontaneous
  Country: BE (occurrence: BE)
  Receive Date: 20200304
  Receipt Date: 20200420
  Transmission Date: 20200713
  Serious: Yes (Hospitalization, Other)
  Sender: FDA-Public Use
  Company Number: BE-TAKEDA-2020TUS012587

PATIENT
  Age: 59 Year
  Sex: Female
  Weight: 51 kg

DRUGS (6)
  1. ACICLOVIR                          /00587302/ [Concomitant]
     Active Substance: ACYCLOVIR SODIUM
     Indication: ANTIVIRAL PROPHYLAXIS
     Dosage: 400 MILLIGRAM, BID
     Route: 048
  2. ATARAX [Concomitant]
     Active Substance: HYDROXYZINE HYDROCHLORIDE
     Indication: CRYOGLOBULINAEMIA
     Dosage: 25 MILLIGRAM, QD
     Route: 048
  3. CYCLOPHOSPHAMIDE. [Concomitant]
     Active Substance: CYCLOPHOSPHAMIDE
     Indication: CRYOGLOBULINAEMIA
     Dosage: 300 MILLIGRAM, QD
     Route: 048
     Dates: start: 20191126, end: 20191217
  4. VELCADE [Suspect]
     Active Substance: BORTEZOMIB
     Indication: CRYOGLOBULINAEMIA
     Dosage: 2 MILLIGRAM
     Route: 058
     Dates: start: 20191126, end: 20191217
  5. DEXAMETHASONE. [Concomitant]
     Active Substance: DEXAMETHASONE
     Indication: CRYOGLOBULINAEMIA
     Dosage: 20 MILLIGRAM, 1/WEEK
     Route: 048
     Dates: start: 20191126, end: 20191217
  6. BISOPROLOL                         /00802602/ [Concomitant]
     Active Substance: BISOPROLOL
     Indication: HYPERTENSION
     Dosage: 2.5 MILLIGRAM, BID
     Route: 065

REACTIONS (4)
  - Thrombotic microangiopathy [Recovered/Resolved with Sequelae]
  - Haemolytic uraemic syndrome [Recovered/Resolved with Sequelae]
  - Off label use [Unknown]
  - Product use in unapproved indication [Unknown]

NARRATIVE: CASE EVENT DATE: 20191126
